FAERS Safety Report 6998583-0 (Version None)
Quarter: 2010Q3

REPORT INFORMATION
  Report Type: 
  Country: None (occurrence: None)
  Receive Date: 20100920
  Receipt Date: 20100329
  Transmission Date: 20110219
  Serious: No
  Sender: FDA-Public Use
  Company Number: US-ASTRAZENECA-2010SE05441

PATIENT
  Age: 565 Month
  Sex: Female
  Weight: 142.9 kg

DRUGS (6)
  1. SEROQUEL [Suspect]
     Indication: BIPOLAR DISORDER
     Route: 048
     Dates: start: 20030101
  2. HALDOL [Concomitant]
  3. THORAZINE [Concomitant]
  4. ZYPREXA [Concomitant]
  5. SYMBYAX [Concomitant]
  6. LITHIUM CARBONATE [Concomitant]

REACTIONS (2)
  - OBESITY [None]
  - TYPE 2 DIABETES MELLITUS [None]
